FAERS Safety Report 17832007 (Version 1)
Quarter: 2020Q2

REPORT INFORMATION
  Report Type: Spontaneous
  Country: US (occurrence: US)
  Receive Date: 20200527
  Receipt Date: 20200527
  Transmission Date: 20200714
  Serious: No
  Sender: FDA-Public Use
  Company Number: US-ROCHE-2396909

PATIENT
  Sex: Female

DRUGS (1)
  1. OCRELIZUMAB. [Suspect]
     Active Substance: OCRELIZUMAB
     Indication: RELAPSING MULTIPLE SCLEROSIS
     Dosage: FIRST DOSE 300 MG IV X 2 TWO WEEKS APART GIVEN IN DECEMBER 2018
     Route: 065

REACTIONS (3)
  - Blood bilirubin increased [Unknown]
  - Hepatic enzyme increased [Unknown]
  - Nausea [Unknown]
